FAERS Safety Report 8947783 (Version 1)
Quarter: 2012Q4

REPORT INFORMATION
  Report Type: Spontaneous
  Country: US (occurrence: None)
  Receive Date: 20121127
  Receipt Date: 20121127
  Transmission Date: 20130627
  Serious: Yes (Hospitalization)
  Sender: FDA-Public Use
  Company Number: USA/USA/12/0026763

PATIENT
  Age: 21 Year
  Sex: Female

DRUGS (3)
  1. LEVOFLOXACIN [Suspect]
     Indication: INTRA-ABDOMINAL ABSCESS
  2. VANCOMYCIN [Suspect]
     Indication: INTRA-ABDOMINAL ABSCESS
  3. METRONIDAZOLE (METRONIDAZOLE) [Suspect]
     Indication: INTRA-ABDOMINAL ABSCESS

REACTIONS (6)
  - Eosinophilia [None]
  - Drug reaction with eosinophilia and systemic symptoms [None]
  - Alanine aminotransferase increased [None]
  - Aspartate aminotransferase increased [None]
  - Lymphadenopathy [None]
  - Hepatomegaly [None]
